FAERS Safety Report 19482793 (Version 2)
Quarter: 2021Q3

REPORT INFORMATION
  Report Type: Report from Study
  Country: IT (occurrence: IT)
  Receive Date: 20210701
  Receipt Date: 20210716
  Transmission Date: 20211014
  Serious: Yes (Hospitalization)
  Sender: FDA-Public Use
  Company Number: IT-TEVA-2021-IT-1928065

PATIENT
  Age: 70 Year
  Sex: Male

DRUGS (5)
  1. CLOPIDOGREL [Suspect]
     Active Substance: CLOPIDOGREL BISULFATE
     Dosage: 1DF
     Route: 048
  2. LUCEN 20 MG COMPRESSE GASTRORESISTENTI [Concomitant]
  3. CARDIOASPIRIN 100 MG COMPRESSE GASTRORESISTENTI [Interacting]
     Active Substance: ASPIRIN
     Dosage: 1DF
     Route: 048
  4. NALAPRES 20 MG + 12,5 MG COMPRESSE [Concomitant]
  5. SIMVASTATIN. [Concomitant]
     Active Substance: SIMVASTATIN

REACTIONS (5)
  - Balance disorder [Not Recovered/Not Resolved]
  - Discomfort [Not Recovered/Not Resolved]
  - Headache [Not Recovered/Not Resolved]
  - Drug interaction [Not Recovered/Not Resolved]
  - Conjunctival haemorrhage [Not Recovered/Not Resolved]

NARRATIVE: CASE EVENT DATE: 20210605
